FAERS Safety Report 4971170-1 (Version None)
Quarter: 2006Q1

REPORT INFORMATION
  Report Type: 
  Country: None (occurrence: None)
  Receive Date: 20060222
  Receipt Date: 20050727
  Transmission Date: 20060701
  Serious: Yes (Other)
  Sender: FDA-Public Use
  Company Number: HQWYE585128JUL05

PATIENT
  Age: 65 Year
  Sex: Female

DRUGS (8)
  1. PROTONIX [Suspect]
     Indication: PROPHYLAXIS
     Dosage: 40 MG 1X PER 1 DAY, ORAL
     Route: 048
     Dates: start: 20050705, end: 20050727
  2. ALLEGRA [Concomitant]
  3. AVALIDE [Concomitant]
  4. HYDREA [Concomitant]
  5. TOPROL-XL [Concomitant]
  6. RHINOCORT [Concomitant]
  7. HYDROCHLOROTHIAZIDE [Concomitant]
  8. COUMADIN [Concomitant]

REACTIONS (1)
  - PLATELET COUNT DECREASED [None]
